FAERS Safety Report 7987018-7 (Version None)
Quarter: 2011Q4

REPORT INFORMATION
  Report Type: 
  Country: None (occurrence: None)
  Receive Date: 20111216
  Receipt Date: 20110311
  Transmission Date: 20120403
  Serious: No
  Sender: FDA-Public Use
  Company Number: US-BRISTOL-MYERS SQUIBB COMPANY-15602246

PATIENT
  Age: 6 Year
  Sex: Male
  Weight: 16 kg

DRUGS (4)
  1. CONCERTA [Concomitant]
  2. NEURONTIN [Concomitant]
  3. ABILIFY [Suspect]
     Dosage: DISCONTINUED ON MID JAN CONTINUED 2MG UNTIL FEB.
     Dates: start: 20101101
  4. TENEX [Concomitant]

REACTIONS (2)
  - MEDICATION ERROR [None]
  - DYSKINESIA [None]
